FAERS Safety Report 6691386-6 (Version None)
Quarter: 2010Q2

REPORT INFORMATION
  Report Type: 
  Country: None (occurrence: None)
  Receive Date: 20100422
  Receipt Date: 20100416
  Transmission Date: 20101027
  Serious: Yes (Hospitalization, Other)
  Sender: FDA-Public Use
  Company Number: US-RB-003150-10

PATIENT
  Age: 42 Year
  Sex: Female

DRUGS (1)
  1. SUBOXONE [Suspect]
     Indication: DRUG USE FOR UNKNOWN INDICATION
     Dosage: UNKNOWN DOSING DETAILS
     Route: 065

REACTIONS (6)
  - ABDOMINAL PAIN UPPER [None]
  - INCREASED APPETITE [None]
  - JOINT SWELLING [None]
  - OEDEMA PERIPHERAL [None]
  - PITUITARY TUMOUR [None]
  - WEIGHT INCREASED [None]
